FAERS Safety Report 5502301-2 (Version None)
Quarter: 2007Q4

REPORT INFORMATION
  Report Type: 
  Country: None (occurrence: None)
  Receive Date: 20071030
  Receipt Date: 20071016
  Transmission Date: 20080405
  Serious: Yes (Other)
  Sender: FDA-Public Use
  Company Number: FR-GENENTECH-248247

PATIENT
  Age: 55 Year
  Sex: Female
  Weight: 154.3 kg

DRUGS (4)
  1. AVASTIN [Suspect]
     Indication: BREAST CANCER METASTATIC
     Dosage: 15 MG/ML, UNK
     Route: 042
     Dates: start: 20070415
  2. ZOMETA [Suspect]
     Indication: DRUG USE FOR UNKNOWN INDICATION
  3. TAXOTERE [Concomitant]
     Indication: DRUG USE FOR UNKNOWN INDICATION
     Dates: start: 20070415
  4. ZOFRAN [Concomitant]
     Indication: DRUG USE FOR UNKNOWN INDICATION

REACTIONS (2)
  - GINGIVAL ULCERATION [None]
  - OSTEONECROSIS [None]
